FAERS Safety Report 25353480 (Version 1)
Quarter: 2025Q2

REPORT INFORMATION
  Report Type: Spontaneous
  Country: US (occurrence: US)
  Receive Date: 20250523
  Receipt Date: 20250523
  Transmission Date: 20250716
  Serious: Yes (Hospitalization, Other)
  Sender: Kenvue
  Company Number: US-KENVUE-20250506790

PATIENT

DRUGS (2)
  1. IBUPROFEN [Suspect]
     Active Substance: IBUPROFEN
     Indication: Product used for unknown indication
     Route: 048
  2. QUETIAPINE [Suspect]
     Active Substance: QUETIAPINE
     Indication: Product used for unknown indication
     Route: 048

REACTIONS (9)
  - Product administered to patient of inappropriate age [Unknown]
  - Mucosal dryness [Unknown]
  - Flushing [Unknown]
  - Urinary retention [Unknown]
  - Tachycardia [Unknown]
  - Agitation [Unknown]
  - Delirium [Unknown]
  - Intentional product use issue [Unknown]
  - Toxicity to various agents [Unknown]
